FAERS Safety Report 9466056 (Version 4)
Quarter: 2014Q1

REPORT INFORMATION
  Report Type: Spontaneous
  Country: US (occurrence: US)
  Receive Date: 20130820
  Receipt Date: 20140221
  Transmission Date: 20141002
  Serious: No
  Sender: FDA-Public Use
  Company Number: US-B.I. PHARMACEUTICALS,INC./RIDGEFIELD-2013-BI-24611BP

PATIENT
  Age: 81 Year
  Sex: Male
  Weight: 63.5 kg

DRUGS (1)
  1. COMBIVENT [Suspect]
     Indication: CHRONIC OBSTRUCTIVE PULMONARY DISEASE
     Dosage: STRENGTH: 20 MCG / 100 MCG; DAILY DOSE: 80 MCG/400 MCG
     Route: 055
     Dates: start: 201305

REACTIONS (4)
  - Glaucoma [Not Recovered/Not Resolved]
  - Amnesia [Not Recovered/Not Resolved]
  - Disorientation [Not Recovered/Not Resolved]
  - Product quality issue [Unknown]
